FAERS Safety Report 5266590-4 (Version None)
Quarter: 2007Q1

REPORT INFORMATION
  Report Type: 
  Country: None (occurrence: None)
  Receive Date: 20070315
  Receipt Date: 20070305
  Transmission Date: 20070707
  Serious: Yes (Life-Threatening, Hospitalization)
  Sender: FDA-Public Use
  Company Number: JP-PFIZER INC-2007011460

PATIENT
  Sex: Male

DRUGS (6)
  1. LIPITOR [Suspect]
     Indication: HYPERLIPIDAEMIA
     Dosage: DAILY DOSE:10MG
     Route: 048
  2. CARDENALIN [Suspect]
     Indication: HYPERTENSION
     Dosage: DAILY DOSE:2MG
     Route: 048
  3. CAPTOPRIL [Suspect]
     Indication: HYPERTENSION
     Dosage: DAILY DOSE:25MG
     Route: 048
  4. HARNAL [Concomitant]
     Dosage: DAILY DOSE:.2MG
     Route: 048
  5. NIFEDIPINE [Concomitant]
     Dosage: DAILY DOSE:40MG
     Route: 048
  6. LASIX [Concomitant]
     Dosage: DAILY DOSE:40MG
     Route: 048

REACTIONS (1)
  - HYPOGLYCAEMIA [None]
